FAERS Safety Report 21194896 (Version 1)
Quarter: 2022Q3

REPORT INFORMATION
  Report Type: Spontaneous
  Country: IT (occurrence: IT)
  Receive Date: 20220810
  Receipt Date: 20220810
  Transmission Date: 20221027
  Serious: Yes (Other)
  Sender: FDA-Public Use
  Company Number: IT-NOVARTISPH-NVSC2022IT140420

PATIENT
  Age: 25 Year
  Sex: Male
  Weight: 71 kg

DRUGS (3)
  1. CANAKINUMAB [Suspect]
     Active Substance: CANAKINUMAB
     Indication: Cryopyrin associated periodic syndrome
     Dosage: 150 MG, Q2MO
     Route: 058
     Dates: start: 2008
  2. CANAKINUMAB [Suspect]
     Active Substance: CANAKINUMAB
     Indication: Chronic infantile neurological cutaneous and articular syndrome
     Dosage: 300 MG, QMO
     Route: 058
     Dates: end: 2021
  3. ENALAPRIL [Concomitant]
     Active Substance: ENALAPRIL
     Indication: Cardiomyopathy
     Dosage: 30 MG, QD (20+10 MG)
     Route: 048

REACTIONS (3)
  - Tachyphylaxis [Recovered/Resolved]
  - Inflammatory marker increased [Unknown]
  - Pyrexia [Unknown]

NARRATIVE: CASE EVENT DATE: 20210901
